FAERS Safety Report 9513756 (Version 1)
Quarter: 2013Q3

REPORT INFORMATION
  Report Type: Spontaneous
  Country: US (occurrence: US)
  Receive Date: 20130910
  Receipt Date: 20130910
  Transmission Date: 20140515
  Serious: Yes (Other)
  Sender: FDA-Public Use
  Company Number: ALCN2013US004523

PATIENT
  Age: 65 Year
  Sex: Female

DRUGS (1)
  1. VITAMINS [Suspect]
     Dosage: 1 DF, QD
     Route: 048
     Dates: start: 2013, end: 20130903

REACTIONS (2)
  - Choking [Recovered/Resolved]
  - Foreign body [Recovered/Resolved]
